FAERS Safety Report 4319253-3 (Version None)
Quarter: 2004Q1

REPORT INFORMATION
  Report Type: 
  Country: None (occurrence: None)
  Receive Date: 20040316
  Receipt Date: 20040301
  Transmission Date: 20041129
  Serious: No
  Sender: FDA-Public Use
  Company Number: 235363

PATIENT
  Age: 52 Year
  Sex: Male
  Weight: 55.3388 kg

DRUGS (3)
  1. ACTRAPID NOVOLET(INSULIN HUMAN) SOLUTION FOR INJECTION, 100IU/ML [Suspect]
     Indication: DIABETES MELLITUS
     Dates: start: 20000101
  2. PROTAPHANE (INSULIN HUMAN) SUSPENSION FOR INJECTION [Concomitant]
  3. ACTRAPID (INSULIN HUMAN) SOLUTION FOR INJECTION [Concomitant]

REACTIONS (11)
  - ABDOMINAL DISTENSION [None]
  - ARTHRALGIA [None]
  - BACK PAIN [None]
  - COUGH [None]
  - DIFFICULTY IN WALKING [None]
  - FATIGUE [None]
  - FEELING HOT [None]
  - FLUSHING [None]
  - GROIN PAIN [None]
  - HEADACHE [None]
  - NEURALGIA [None]
